FAERS Safety Report 20470466 (Version 7)
Quarter: 2022Q3

REPORT INFORMATION
  Report Type: Spontaneous
  Country: GB (occurrence: GB)
  Receive Date: 20220214
  Receipt Date: 20220927
  Transmission Date: 20221026
  Serious: Yes (Hospitalization, Other)
  Sender: FDA-Public Use
  Company Number: GB-ROCHE-3010458

PATIENT
  Age: 62 Year
  Sex: Female

DRUGS (146)
  1. XGEVA [Suspect]
     Active Substance: DENOSUMAB
     Indication: Breast cancer metastatic
     Dosage: 120 MILLIGRAM
     Route: 058
     Dates: start: 20201231
  2. TRASTUZUMAB [Suspect]
     Active Substance: TRASTUZUMAB
     Indication: Breast cancer metastatic
     Dosage: 600 MILLIGRAM
     Route: 058
     Dates: start: 20180202
  3. EXEMESTANE [Suspect]
     Active Substance: EXEMESTANE
     Indication: Breast cancer metastatic
     Dosage: 25 MILLIGRAM/SQ. METER, QD
     Route: 048
     Dates: start: 20200228
  4. LETROZOLE [Suspect]
     Active Substance: LETROZOLE
     Indication: Breast cancer metastatic
     Dosage: 2.5 MILLIGRAM, QD
     Route: 048
     Dates: start: 20180119, end: 20180126
  5. LETROZOLE [Suspect]
     Active Substance: LETROZOLE
     Dosage: 2.5 MILLIGRAM, QD
     Route: 048
     Dates: start: 20180525
  6. PACLITAXEL [Suspect]
     Active Substance: PACLITAXEL
     Indication: Breast cancer metastatic
     Dosage: 156 MILLIGRAM, QWK
     Route: 042
     Dates: start: 20180202
  7. ADO-TRASTUZUMAB EMTANSINE [Suspect]
     Active Substance: ADO-TRASTUZUMAB EMTANSINE
     Indication: Breast cancer metastatic
     Dosage: 420 MILLIGRAM, Q3WK
     Route: 042
     Dates: start: 20181019
  8. CALCIUM CARBONATE\CHOLECALCIFEROL [Concomitant]
     Active Substance: CALCIUM CARBONATE\CHOLECALCIFEROL
     Dosage: UNK, BID
     Route: 048
     Dates: start: 20140127
  9. AMLODIPINE [Concomitant]
     Active Substance: AMLODIPINE BESYLATE
     Dosage: 10 MILLIGRAM, QD
     Route: 048
     Dates: end: 20180301
  10. AMOXICILLIN [Concomitant]
     Active Substance: AMOXICILLIN
     Indication: Stoma site haemorrhage
     Dosage: 1 GRAM, TID
     Route: 042
     Dates: start: 20190911, end: 20190915
  11. CARBOXYMETHYLCELLULOSE SODIUM [Concomitant]
     Active Substance: CARBOXYMETHYLCELLULOSE SODIUM
     Indication: Wound
     Dosage: UNK
     Route: 061
     Dates: start: 20181220, end: 20190116
  12. BENDROFLUMETHIAZIDE [Concomitant]
     Active Substance: BENDROFLUMETHIAZIDE
     Indication: Stoma site haemorrhage
     Dosage: 2.5 MILLIGRAM, QD
     Route: 048
     Dates: start: 20030114, end: 20190906
  13. BENDROFLUMETHIAZIDE [Concomitant]
     Active Substance: BENDROFLUMETHIAZIDE
     Dosage: 2.5 MILLIGRAM, QD
     Route: 048
     Dates: start: 20190908
  14. BENZYDAMINE [Concomitant]
     Active Substance: BENZYDAMINE
     Dosage: 5 MILLILITER, AS NECESSARY
     Dates: start: 20180414
  15. CETIRIZINE [Concomitant]
     Active Substance: CETIRIZINE HYDROCHLORIDE
     Dosage: 10 MICROGRAM
     Route: 048
     Dates: start: 20080430, end: 20191119
  16. CHIROCAINE [Concomitant]
     Active Substance: LEVOBUPIVACAINE HYDROCHLORIDE
     Indication: Arthralgia
     Dosage: 20 MILLILITER
     Route: 008
     Dates: start: 20181220, end: 20181220
  17. CHLORHEXIDINE [Concomitant]
     Active Substance: CHLORHEXIDINE
     Dosage: 10 MILLILITER, AS NECESSARY
     Route: 050
     Dates: start: 20181019
  18. CHLORPHENIRAMINE MALEATE [Concomitant]
     Active Substance: CHLORPHENIRAMINE MALEATE
     Indication: Stoma site haemorrhage
     Dosage: 10 MILLIGRAM
     Route: 042
     Dates: start: 20180202, end: 20180518
  19. CHLORPHENIRAMINE MALEATE [Concomitant]
     Active Substance: CHLORPHENIRAMINE MALEATE
     Dosage: 4 MILLIGRAM, AS NECESSARY
     Route: 048
     Dates: start: 20190919
  20. CHLORPHENIRAMINE MALEATE [Concomitant]
     Active Substance: CHLORPHENIRAMINE MALEATE
     Dosage: 4 MILLIGRAM, QD
     Route: 048
     Dates: start: 20190909, end: 20190915
  21. CIPROFLOXACIN [Concomitant]
     Active Substance: CIPROFLOXACIN
     Indication: Urinary tract infection
     Dosage: 500 MILLIGRAM, BID
     Route: 048
     Dates: start: 201910, end: 20191009
  22. CIPROFLOXACIN [Concomitant]
     Active Substance: CIPROFLOXACIN
     Indication: Stoma site haemorrhage
     Dosage: 400 MILLIGRAM, BID
     Route: 042
     Dates: start: 20220124
  23. CLARITHROMYCIN [Concomitant]
     Active Substance: CLARITHROMYCIN
     Indication: Cellulitis
     Dosage: 500 MILLIGRAM, BID
     Route: 048
     Dates: start: 20190717, end: 20190724
  24. CLARITHROMYCIN [Concomitant]
     Active Substance: CLARITHROMYCIN
     Dosage: 500 MILLIGRAM, QD
     Route: 048
     Dates: start: 20190519
  25. CLARITHROMYCIN [Concomitant]
     Active Substance: CLARITHROMYCIN
     Dosage: 500 MILLIGRAM, BID
     Route: 048
     Dates: start: 20200519, end: 20200525
  26. CLARITHROMYCIN [Concomitant]
     Active Substance: CLARITHROMYCIN
     Dosage: 500 MILLIGRAM, BID
     Route: 048
     Dates: start: 20200901, end: 20200908
  27. CLARITHROMYCIN [Concomitant]
     Active Substance: CLARITHROMYCIN
     Dosage: 500 GRAM
     Route: 048
     Dates: start: 20210521
  28. CLARITHROMYCIN [Concomitant]
     Active Substance: CLARITHROMYCIN
     Dosage: UNK, UNK
  29. CLARITHROMYCIN [Concomitant]
     Active Substance: CLARITHROMYCIN
     Dosage: UNK, UNK
  30. CLARITHROMYCIN [Concomitant]
     Active Substance: CLARITHROMYCIN
  31. ENOXAPARIN SODIUM [Concomitant]
     Active Substance: ENOXAPARIN SODIUM
     Indication: Oedema peripheral
     Dosage: 40 MILLIGRAM
     Route: 058
     Dates: start: 20180227, end: 20180228
  32. ENOXAPARIN SODIUM [Concomitant]
     Active Substance: ENOXAPARIN SODIUM
     Indication: Stoma site haemorrhage
     Dosage: 40 MILLIGRAM, QD
     Route: 058
     Dates: start: 20190526, end: 20190527
  33. AMOXICILLIN\CLAVULANATE POTASSIUM [Concomitant]
     Active Substance: AMOXICILLIN\CLAVULANATE POTASSIUM
     Indication: Stoma site haemorrhage
     Dosage: 625 MILLIGRAM, TID
     Route: 048
     Dates: start: 20190915, end: 20190916
  34. COCODAMOL [Concomitant]
     Active Substance: ACETAMINOPHEN\CODEINE PHOSPHATE
     Dosage: UNK
     Route: 048
     Dates: start: 20030104, end: 20180225
  35. COCODAMOL [Concomitant]
     Active Substance: ACETAMINOPHEN\CODEINE PHOSPHATE
     Dosage: UNK
     Route: 048
     Dates: start: 20180302
  36. CODEINE [Concomitant]
     Active Substance: CODEINE
     Indication: Oedema peripheral
     Dosage: 30 MILLIGRAM
     Route: 048
     Dates: start: 20180228, end: 20180301
  37. CODEINE [Concomitant]
     Active Substance: CODEINE
     Indication: Abdominal hernia obstructive
     Dosage: 30 MILLIGRAM, AS NECESSARY
     Route: 048
     Dates: start: 20191111, end: 20191111
  38. CODEINE [Concomitant]
     Active Substance: CODEINE
     Indication: Wound
  39. CHOLECALCIFEROL [Concomitant]
     Active Substance: CHOLECALCIFEROL
     Dosage: UNK, BID
     Route: 048
     Dates: start: 20180926
  40. CHOLECALCIFEROL [Concomitant]
     Active Substance: CHOLECALCIFEROL
     Dosage: UNK
  41. CHOLECALCIFEROL [Concomitant]
     Active Substance: CHOLECALCIFEROL
     Dosage: UNK
  42. CHOLECALCIFEROL [Concomitant]
     Active Substance: CHOLECALCIFEROL
  43. CYCLIZINE [Concomitant]
     Active Substance: CYCLIZINE
     Dosage: 50 MILLIGRAM, AS NECESSARY
     Route: 048
     Dates: start: 20181102
  44. DEXAMETHASONE [Concomitant]
     Active Substance: DEXAMETHASONE
     Indication: Arthralgia
     Dosage: 8 MILLIGRAM
     Route: 042
     Dates: start: 20180202, end: 20180518
  45. DEXAMETHASONE [Concomitant]
     Active Substance: DEXAMETHASONE
     Dosage: 4 MILLIGRAM, QD
     Route: 048
     Dates: start: 20180916, end: 20181004
  46. DEXAMETHASONE [Concomitant]
     Active Substance: DEXAMETHASONE
     Dosage: 3 MILLIGRAM, QD
     Route: 048
     Dates: start: 20181008, end: 20181014
  47. DEXAMETHASONE [Concomitant]
     Active Substance: DEXAMETHASONE
     Dosage: 2 MILLIGRAM, QD
     Route: 048
     Dates: start: 20181015, end: 20181022
  48. DEXAMETHASONE [Concomitant]
     Active Substance: DEXAMETHASONE
     Dosage: 1 MILLIGRAM, QD
     Route: 048
     Dates: start: 20181023, end: 20181030
  49. DEXAMETHASONE [Concomitant]
     Active Substance: DEXAMETHASONE
     Dosage: 3.3 GRAM
     Route: 042
     Dates: start: 20181220, end: 20181220
  50. ISOPROPYL MYRISTATE\MINERAL OIL [Concomitant]
     Active Substance: ISOPROPYL MYRISTATE\MINERAL OIL
     Dosage: UNK, AS NECESSARY
     Route: 061
     Dates: start: 20180605, end: 20210329
  51. DOXAZOSIN [Concomitant]
     Active Substance: DOXAZOSIN MESYLATE
     Dosage: 2 MILLIGRAM, QD
     Route: 048
     Dates: start: 20040816, end: 20190906
  52. DOXYCYCLINE [Concomitant]
     Active Substance: DOXYCYCLINE
     Indication: Skin ulcer
     Dosage: 100 MILLIGRAM, BID
     Route: 048
     Dates: start: 20181113, end: 20181113
  53. DOXYCYCLINE [Concomitant]
     Active Substance: DOXYCYCLINE
     Dosage: 100 MILLIGRAM, QD
     Route: 048
     Dates: start: 20181114, end: 20181119
  54. ENOXAPARIN [Concomitant]
     Active Substance: ENOXAPARIN
     Indication: Arthralgia
     Dosage: 4 MILLIGRAM, AS NECESSARY
     Route: 042
     Dates: start: 20181119, end: 20181122
  55. ENOXAPARIN [Concomitant]
     Active Substance: ENOXAPARIN
     Dosage: 40 MILLIGRAM, QD
     Route: 058
     Dates: start: 20181220, end: 20190107
  56. ENOXAPARIN [Concomitant]
     Active Substance: ENOXAPARIN
     Dosage: 40 MILLIGRAM, QD
     Route: 058
     Dates: start: 20211102, end: 20211104
  57. EUMOVATE [Concomitant]
     Active Substance: CLOBETASONE BUTYRATE
     Dosage: UNK, BID
     Route: 061
     Dates: start: 20190403
  58. FERROUS FUMARATE [Concomitant]
     Active Substance: FERROUS FUMARATE
     Indication: Stoma site haemorrhage
     Dosage: 210 MILLIGRAM, TID
     Route: 048
     Dates: start: 20190730
  59. FEXOFENADINE [Concomitant]
     Active Substance: FEXOFENADINE HYDROCHLORIDE
     Indication: Abdominal hernia obstructive
     Dosage: 180 MILLIGRAM, QD
     Route: 048
     Dates: start: 20190403, end: 20190503
  60. FEXOFENADINE [Concomitant]
     Active Substance: FEXOFENADINE HYDROCHLORIDE
     Dosage: 180 MILLIGRAM, QD
     Route: 048
     Dates: start: 201911, end: 20191119
  61. FLUCONAZOLE [Concomitant]
     Active Substance: FLUCONAZOLE
     Dosage: 100 MILLIGRAM, QD
     Route: 048
     Dates: start: 20180125, end: 20180128
  62. FOLIC ACID [Concomitant]
     Active Substance: FOLIC ACID
     Dosage: 5 MILLIGRAM, QD
     Route: 048
     Dates: start: 20030207
  63. FUROSEMIDE [Concomitant]
     Active Substance: FUROSEMIDE
     Indication: Oedema peripheral
     Dosage: 50 MILLIGRAM
     Route: 042
     Dates: start: 20180225, end: 20180225
  64. FUROSEMIDE [Concomitant]
     Active Substance: FUROSEMIDE
     Dosage: 20 MILLIGRAM, QD
     Route: 048
     Dates: start: 20200507, end: 20200614
  65. FUROSEMIDE [Concomitant]
     Active Substance: FUROSEMIDE
     Dosage: 40 MILLIGRAM, QD
     Route: 048
     Dates: start: 20200615
  66. BETAMETHASONE VALERATE\FUSIDIC ACID [Concomitant]
     Active Substance: BETAMETHASONE VALERATE\FUSIDIC ACID
     Dosage: UNK, BID
     Route: 061
     Dates: start: 20201201
  67. GENTAMICIN [Concomitant]
     Active Substance: GENTAMICIN
     Indication: Stoma site haemorrhage
     Dosage: 400 MILLIGRAM
     Route: 042
     Dates: start: 20181119, end: 20181119
  68. GENTAMICIN [Concomitant]
     Active Substance: GENTAMICIN
     Dosage: 400 MILLIGRAM
     Route: 042
     Dates: start: 20190526, end: 20190526
  69. GENTAMICIN [Concomitant]
     Active Substance: GENTAMICIN
     Dosage: 400 MILLIGRAM
     Route: 042
     Dates: start: 20190528, end: 20190528
  70. GENTAMICIN [Concomitant]
     Active Substance: GENTAMICIN
     Dosage: 400 MILLIGRAM
     Route: 042
     Dates: start: 20190911, end: 20190911
  71. GENTAMICIN [Concomitant]
     Active Substance: GENTAMICIN
     Dosage: 400 MILLIGRAM
     Route: 042
     Dates: start: 20190913, end: 20190913
  72. HEPARIN SODIUM [Concomitant]
     Active Substance: HEPARIN SODIUM
     Dosage: 5 MILLILITER
     Route: 042
     Dates: start: 20190502, end: 20191106
  73. HYDROXOCOBALAMIN [Concomitant]
     Active Substance: HYDROXOCOBALAMIN
     Dosage: 1 MILLIGRAM
     Route: 030
     Dates: start: 20020115, end: 20200506
  74. HYDROXOCOBALAMIN [Concomitant]
     Active Substance: HYDROXOCOBALAMIN
     Dosage: UNK
     Route: 030
     Dates: start: 20201231
  75. ISOPROPYL MYRISTATE [Concomitant]
     Active Substance: ISOPROPYL MYRISTATE
     Dosage: UNK UNK, AS NECESSARY
     Route: 061
     Dates: start: 20210329
  76. LEVOFLOXACIN [Concomitant]
     Active Substance: LEVOFLOXACIN
     Indication: Oedema peripheral
     Dosage: 500 MILLIGRAM, BID
     Route: 042
     Dates: start: 20180225, end: 20180228
  77. LEVOFLOXACIN [Concomitant]
     Active Substance: LEVOFLOXACIN
     Dosage: 500 MILLIGRAM
     Route: 048
     Dates: start: 20180301, end: 20180301
  78. METOCLOPRAMIDE [Concomitant]
     Active Substance: METOCLOPRAMIDE
     Indication: Stoma site haemorrhage
     Dosage: 10 MILLIGRAM, AS NECESSARY
     Route: 048
     Dates: start: 20180202, end: 20180518
  79. METOCLOPRAMIDE [Concomitant]
     Active Substance: METOCLOPRAMIDE
     Dosage: 10 MILLIGRAM
     Route: 048
     Dates: start: 20190909, end: 20190909
  80. METOCLOPRAMIDE [Concomitant]
     Active Substance: METOCLOPRAMIDE
     Dosage: 10 MILLIGRAM, QD
     Route: 048
     Dates: start: 201910
  81. METRONIDAZOLE [Concomitant]
     Active Substance: METRONIDAZOLE
     Indication: Stoma site haemorrhage
     Dosage: 500 MILLIGRAM, TID
     Route: 042
     Dates: start: 20181119, end: 20181121
  82. METRONIDAZOLE [Concomitant]
     Active Substance: METRONIDAZOLE
     Dosage: 400 MILLIGRAM, TID
     Route: 048
     Dates: start: 20181122, end: 20181123
  83. METRONIDAZOLE [Concomitant]
     Active Substance: METRONIDAZOLE
     Dosage: 500 MILLIGRAM, TID
     Route: 042
     Dates: start: 20190526, end: 201905
  84. METRONIDAZOLE [Concomitant]
     Active Substance: METRONIDAZOLE
     Dosage: 500 MILLIGRAM, TID
     Route: 048
     Dates: start: 20190911, end: 20190915
  85. METRONIDAZOLE [Concomitant]
     Active Substance: METRONIDAZOLE
     Dosage: 400 MILLIGRAM
     Route: 048
     Dates: start: 20190916, end: 20190916
  86. METRONIDAZOLE [Concomitant]
     Active Substance: METRONIDAZOLE
     Dosage: 400 MILLIGRAM
     Route: 048
     Dates: start: 20190918, end: 20190918
  87. METRONIDAZOLE [Concomitant]
     Active Substance: METRONIDAZOLE
     Dosage: 400 MILLIGRAM, TID
     Route: 048
     Dates: start: 201910, end: 20191009
  88. MORPHINE [Concomitant]
     Active Substance: MORPHINE
     Indication: Arthralgia
     Dosage: 12 MILLILITER
     Route: 042
     Dates: start: 20181220, end: 20181220
  89. SODIUM CHLORIDE [Concomitant]
     Active Substance: SODIUM CHLORIDE
     Indication: Stoma site haemorrhage
     Dosage: 500 MILLILITER
     Route: 042
     Dates: start: 20181122, end: 20181123
  90. SODIUM CHLORIDE [Concomitant]
     Active Substance: SODIUM CHLORIDE
     Dosage: 500 MILLILITER
     Route: 042
     Dates: start: 20181123, end: 20181123
  91. SODIUM CHLORIDE [Concomitant]
     Active Substance: SODIUM CHLORIDE
     Dosage: 500 MILLILITER
     Route: 042
     Dates: start: 20190523, end: 20190523
  92. SODIUM CHLORIDE [Concomitant]
     Active Substance: SODIUM CHLORIDE
     Dosage: 500 MILLILITER
     Route: 042
     Dates: start: 20190726, end: 20190726
  93. SODIUM CHLORIDE [Concomitant]
     Active Substance: SODIUM CHLORIDE
     Dosage: 3500 MILLILITER
     Route: 042
     Dates: start: 20190910, end: 20190912
  94. SODIUM CHLORIDE [Concomitant]
     Active Substance: SODIUM CHLORIDE
     Dosage: UNK
     Route: 042
     Dates: start: 20190920, end: 20190921
  95. SODIUM CHLORIDE [Concomitant]
     Active Substance: SODIUM CHLORIDE
     Dosage: 500 MILLILITER
     Route: 042
     Dates: start: 20200225, end: 20200225
  96. OMEPRAZOLE [Concomitant]
     Active Substance: OMEPRAZOLE
     Indication: Stoma site haemorrhage
     Dosage: 20 MILLIGRAM, QD
     Route: 048
     Dates: start: 20091014, end: 20191106
  97. OMEPRAZOLE [Concomitant]
     Active Substance: OMEPRAZOLE
     Dosage: 40 MILLIGRAM, BID
     Route: 048
     Dates: start: 20191107, end: 20200205
  98. OMEPRAZOLE [Concomitant]
     Active Substance: OMEPRAZOLE
     Dosage: 40 MILLIGRAM, BID
     Route: 048
     Dates: start: 20200219
  99. ONDANSETRON [Concomitant]
     Active Substance: ONDANSETRON
     Indication: Arthralgia
     Dosage: 4 MILLIGRAM, AS NECESSARY
     Route: 042
     Dates: start: 20181119, end: 20181122
  100. ONDANSETRON [Concomitant]
     Active Substance: ONDANSETRON
     Indication: Stoma site haemorrhage
     Dosage: 4 MILLIGRAM, AS NECESSARY
     Route: 048
     Dates: start: 20181216, end: 20190107
  101. ONDANSETRON [Concomitant]
     Active Substance: ONDANSETRON
     Dosage: 4 MILLIGRAM
     Route: 048
     Dates: start: 20190920, end: 20190920
  102. ONDANSETRON [Concomitant]
     Active Substance: ONDANSETRON
     Dosage: 4 MILLIGRAM
     Route: 048
     Dates: start: 20200214, end: 20200214
  103. OXYCODONE [Concomitant]
     Active Substance: OXYCODONE
     Indication: Arthralgia
     Dosage: UNK UNK, BID
     Route: 048
     Dates: start: 20180916, end: 20181002
  104. OXYCODONE [Concomitant]
     Active Substance: OXYCODONE
     Dosage: 5 MILLIGRAM, AS NECESSARY
     Route: 048
     Dates: start: 20180922, end: 20181002
  105. OXYCODONE [Concomitant]
     Active Substance: OXYCODONE
     Dosage: 5 MILLIGRAM, AS NECESSARY
     Route: 048
     Dates: start: 20181003
  106. OXYCODONE [Concomitant]
     Active Substance: OXYCODONE
     Dosage: UNK UNK, BID
     Route: 048
     Dates: start: 20181003
  107. OXYCODONE [Concomitant]
     Active Substance: OXYCODONE
     Dosage: UNK
  108. ACETAMINOPHEN [Concomitant]
     Active Substance: ACETAMINOPHEN
     Indication: Oedema peripheral
     Dosage: 1 GRAM, AS NECESSARY
     Route: 048
     Dates: start: 20180225, end: 20180301
  109. ACETAMINOPHEN [Concomitant]
     Active Substance: ACETAMINOPHEN
     Indication: Arthralgia
     Dosage: 1 GRAM, AS NECESSARY
     Route: 048
     Dates: start: 20180916, end: 20181002
  110. ACETAMINOPHEN [Concomitant]
     Active Substance: ACETAMINOPHEN
     Dosage: 1 GRAM, AS NECESSARY
     Route: 048
     Dates: start: 20181003
  111. ACETAMINOPHEN [Concomitant]
     Active Substance: ACETAMINOPHEN
     Dosage: 1 GRAM
     Route: 042
     Dates: start: 20181220, end: 20181220
  112. PENTASA [Concomitant]
     Active Substance: MESALAMINE
     Dosage: UNK, QD
     Route: 048
     Dates: start: 20131217
  113. CHLORPHENIRAMINE MALEATE [Concomitant]
     Active Substance: CHLORPHENIRAMINE MALEATE
     Dosage: 4 MILLIGRAM, AS NECESSARY
     Route: 048
     Dates: start: 20180125
  114. PLASMA-LYTE 148 [Concomitant]
     Active Substance: MAGNESIUM CHLORIDE\POTASSIUM CHLORIDE\SODIUM ACETATE\SODIUM CHLORIDE\SODIUM GLUCONATE
     Indication: Arthralgia
     Dosage: 100 MILLILITER
     Route: 042
     Dates: start: 20181220, end: 20181220
  115. PROPOFOL [Concomitant]
     Active Substance: PROPOFOL
     Indication: Arthralgia
     Dosage: 150 MILLIGRAM
     Route: 042
     Dates: start: 20181220, end: 20181220
  116. RANITIDINE [Concomitant]
     Active Substance: RANITIDINE
     Dosage: 50 MILLIGRAM
     Route: 042
     Dates: start: 20180202, end: 20180518
  117. RANITIDINE [Concomitant]
     Active Substance: RANITIDINE
     Dosage: 150 MILLIGRAM
     Route: 050
     Dates: start: 20181123, end: 20181123
  118. POTASSIUM BICARBONATE\POTASSIUM CHLORIDE [Concomitant]
     Active Substance: POTASSIUM BICARBONATE\POTASSIUM CHLORIDE
     Indication: Arthralgia
     Dosage: UNK, TID
     Route: 048
     Dates: start: 20181216, end: 20181218
  119. POTASSIUM BICARBONATE\POTASSIUM CHLORIDE [Concomitant]
     Active Substance: POTASSIUM BICARBONATE\POTASSIUM CHLORIDE
     Indication: Stoma site haemorrhage
     Dosage: UNK, TID
     Route: 048
     Dates: start: 20190730, end: 20190730
  120. POTASSIUM BICARBONATE\POTASSIUM CHLORIDE [Concomitant]
     Active Substance: POTASSIUM BICARBONATE\POTASSIUM CHLORIDE
     Dosage: UNK, TID
     Route: 048
     Dates: start: 20190911, end: 20190912
  121. POTASSIUM BICARBONATE\POTASSIUM CHLORIDE [Concomitant]
     Active Substance: POTASSIUM BICARBONATE\POTASSIUM CHLORIDE
     Dosage: UNK, TID
     Route: 048
     Dates: start: 20211103, end: 20211105
  122. SILVER NITRATE [Concomitant]
     Active Substance: SILVER NITRATE
     Indication: Stoma site haemorrhage
     Dosage: UNK
     Route: 061
     Dates: start: 20180329, end: 20180329
  123. SILVER NITRATE [Concomitant]
     Active Substance: SILVER NITRATE
     Dosage: UNK
     Route: 061
     Dates: start: 20190510, end: 20190510
  124. SILVER NITRATE [Concomitant]
     Active Substance: SILVER NITRATE
     Dosage: UNK
     Route: 061
     Dates: start: 20190522, end: 20190522
  125. SILVER NITRATE [Concomitant]
     Active Substance: SILVER NITRATE
     Dosage: UNK
     Route: 061
     Dates: start: 20190527, end: 20190527
  126. SILVER NITRATE [Concomitant]
     Active Substance: SILVER NITRATE
     Dosage: UNK
     Route: 061
     Dates: start: 20200225, end: 20200225
  127. TERBUTALINE [Concomitant]
     Active Substance: TERBUTALINE
     Dosage: 500 MICROGRAM, QID
     Route: 065
     Dates: start: 20030108
  128. TRANEXAMIC ACID [Concomitant]
     Active Substance: TRANEXAMIC ACID
     Indication: Stoma site haemorrhage
     Dosage: 1 GRAM
     Route: 042
     Dates: start: 20181220, end: 20181220
  129. TRANEXAMIC ACID [Concomitant]
     Active Substance: TRANEXAMIC ACID
     Indication: Arthralgia
     Dosage: 1 GRAM, TID
     Route: 048
     Dates: start: 20190804, end: 20190806
  130. TRANEXAMIC ACID [Concomitant]
     Active Substance: TRANEXAMIC ACID
     Dosage: 1 GRAM, TID
     Route: 054
     Dates: start: 20190909, end: 20190911
  131. TRANEXAMIC ACID [Concomitant]
     Active Substance: TRANEXAMIC ACID
     Dosage: 1000 MILLIGRAM, TID
     Route: 048
     Dates: start: 20200501, end: 20200504
  132. TRIMETHOPRIM [Concomitant]
     Active Substance: TRIMETHOPRIM
     Indication: Pyrexia
     Dosage: 200 MILLIGRAM, BID
     Route: 048
     Dates: start: 20190813, end: 20190815
  133. VANCOMYCIN [Concomitant]
     Active Substance: VANCOMYCIN
     Indication: Urinary tract infection
     Dosage: 2000 MILLIGRAM
     Route: 042
     Dates: start: 20181119
  134. VANCOMYCIN [Concomitant]
     Active Substance: VANCOMYCIN
     Dosage: 500 MILLIGRAM
     Route: 042
     Dates: start: 20181120, end: 20181122
  135. VANCOMYCIN [Concomitant]
     Active Substance: VANCOMYCIN
     Dosage: 2000 MILLIGRAM
     Route: 042
     Dates: start: 20190526, end: 20190526
  136. VANCOMYCIN [Concomitant]
     Active Substance: VANCOMYCIN
     Dosage: 500 MILLIGRAM, BID
     Route: 042
     Dates: start: 20190527
  137. VANCOMYCIN [Concomitant]
     Active Substance: VANCOMYCIN
     Dosage: UNK UNK, UNK
  138. CLOTRIMAZOLE [Concomitant]
     Active Substance: CLOTRIMAZOLE
     Dosage: UNK UNK, AS NECESSARY
     Route: 061
     Dates: start: 20180125
  139. INFLUENZA VIRUS VACCINE [Concomitant]
     Active Substance: INFLUENZA VIRUS VACCINE
     Dosage: 0.5 MILLILITER
     Route: 030
     Dates: start: 20211106, end: 20211106
  140. MINERAL OIL [Concomitant]
     Active Substance: MINERAL OIL
     Indication: Dry skin
     Dosage: UNK, AS NECESSARY
     Route: 061
     Dates: start: 20210329
  141. OXYGEN [Concomitant]
     Active Substance: OXYGEN
     Indication: Arthralgia
     Dosage: UNK
     Route: 065
     Dates: start: 20181220, end: 20181220
  142. QUININE SULFATE [Concomitant]
     Active Substance: QUININE SULFATE
     Dosage: 200 MILLIGRAM, QD
     Route: 048
     Dates: start: 20040219
  143. SUGAMMADEX [Concomitant]
     Active Substance: SUGAMMADEX
     Indication: Arthralgia
     Dosage: 200 MILLIGRAM
     Route: 042
     Dates: start: 20181220, end: 20181220
  144. TEICOPLANIN [Concomitant]
     Active Substance: TEICOPLANIN
     Indication: Arthralgia
     Dosage: 400 MILLIGRAM
     Route: 042
     Dates: start: 20181220, end: 20181224
  145. ZEROBASE [PARAFFIN] [Concomitant]
     Indication: Dry skin
     Dosage: UNK, AS NECESSARY
     Route: 061
     Dates: start: 20180406
  146. ZOLEDRONIC ACID [Concomitant]
     Active Substance: ZOLEDRONIC ACID
     Dosage: 4 MILLIGRAM
     Route: 042
     Dates: start: 20181019, end: 20190705

REACTIONS (3)
  - Urosepsis [Recovered/Resolved]
  - Neutropenic sepsis [Not Recovered/Not Resolved]
  - Neutropenic sepsis [Not Recovered/Not Resolved]

NARRATIVE: CASE EVENT DATE: 20220119
